FAERS Safety Report 8156873 (Version 1)
Quarter: 2020Q3

REPORT INFORMATION
  Report Type: Report from Study
  Country: JP (occurrence: JP)
  Receive Date: 20110926
  Receipt Date: 20110926
  Transmission Date: 20201104
  Serious: Yes (Life-Threatening, Hospitalization, Other)
  Sender: FDA-Public Use
  Company Number: JP-JNJFOC-20090505305

PATIENT
  Age: 49 Year
  Sex: Male
  Weight: 68 kg

DRUGS (30)
  1. NIFEDIPINE. [Concomitant]
     Active Substance: NIFEDIPINE
     Indication: ILL-DEFINED DISORDER
  2. KETOPROFEN. [Concomitant]
     Active Substance: KETOPROFEN
     Indication: ILL-DEFINED DISORDER
  3. PENTAZOCINE LACTATE [Concomitant]
     Active Substance: PENTAZOCINE LACTATE
     Indication: ILL-DEFINED DISORDER
  4. HEPARIN [Concomitant]
     Active Substance: HEPARIN SODIUM
     Indication: ILL-DEFINED DISORDER
  5. TICLOPIDINE [Suspect]
     Active Substance: TICLOPIDINE
     Indication: ACUTE CORONARY SYNDROME
     Dates: end: 20090521
  6. NOREPINEPHRINE BITARTRATE. [Concomitant]
     Active Substance: NOREPINEPHRINE BITARTRATE
     Indication: ILL-DEFINED DISORDER
  7. LACTATED RINGERS SOLUTION [Concomitant]
     Active Substance: CALCIUM CHLORIDE\POTASSIUM CHLORIDE\SODIUM CHLORIDE\SODIUM LACTATE
     Indication: ILL-DEFINED DISORDER
  8. CEFAZOLIN [Concomitant]
     Active Substance: CEFAZOLIN
     Indication: ILL-DEFINED DISORDER
  9. FUROSEMIDE. [Concomitant]
     Active Substance: FUROSEMIDE
     Indication: ILL-DEFINED DISORDER
  10. VOGLIBOSE [Concomitant]
     Active Substance: VOGLIBOSE
     Indication: ILL-DEFINED DISORDER
  11. LANSOPRAZOLE. [Concomitant]
     Active Substance: LANSOPRAZOLE
     Indication: ILL-DEFINED DISORDER
  12. OLMESARTAN MEDOXOMIL. [Concomitant]
     Active Substance: OLMESARTAN MEDOXOMIL
     Indication: ILL-DEFINED DISORDER
  13. POTASSIUM CHLORIDE. [Concomitant]
     Active Substance: POTASSIUM CHLORIDE
     Indication: ILL-DEFINED DISORDER
  14. MAGNESIUM SULFATE. [Concomitant]
     Active Substance: MAGNESIUM SULFATE
     Indication: ILL-DEFINED DISORDER
  15. RIVAROXABAN [Suspect]
     Active Substance: RIVAROXABAN
     Route: 048
     Dates: start: 20090502, end: 20090527
  16. CANDESARTAN CILEXETIL. [Concomitant]
     Active Substance: CANDESARTAN CILEXETIL
     Indication: ILL-DEFINED DISORDER
  17. NITROGLYCERIN. [Concomitant]
     Active Substance: NITROGLYCERIN
     Indication: ILL-DEFINED DISORDER
  18. ISOSORBIDE DINITRATE. [Concomitant]
     Active Substance: ISOSORBIDE DINITRATE
     Indication: ILL-DEFINED DISORDER
  19. CARPERITIDE [Concomitant]
     Active Substance: CARPERITIDE
     Indication: ILL-DEFINED DISORDER
  20. ASPIRIN. [Concomitant]
     Active Substance: ASPIRIN
     Indication: ACUTE CORONARY SYNDROME
  21. MEPIVACAINE HYDROCHLORIDE. [Concomitant]
     Active Substance: MEPIVACAINE HYDROCHLORIDE
     Indication: ILL-DEFINED DISORDER
  22. LIDOCAINE. [Concomitant]
     Active Substance: LIDOCAINE
     Indication: ILL-DEFINED DISORDER
  23. NICORANDIL [Concomitant]
     Active Substance: NICORANDIL
     Indication: ILL-DEFINED DISORDER
  24. RIVAROXABAN [Suspect]
     Active Substance: RIVAROXABAN
     Indication: ACUTE CORONARY SYNDROME
     Route: 048
     Dates: start: 20090501, end: 20090501
  25. GLIMEPIRIDE. [Concomitant]
     Active Substance: GLIMEPIRIDE
     Indication: ILL-DEFINED DISORDER
  26. HYDROXYZINE HYDROCHLORIDE. [Concomitant]
     Active Substance: HYDROXYZINE HYDROCHLORIDE
     Indication: ILL-DEFINED DISORDER
  27. CLOPIDOGREL [Suspect]
     Active Substance: CLOPIDOGREL BISULFATE
     Indication: ACUTE CORONARY SYNDROME
     Dates: end: 20090522
  28. SPIRONOLACTONE. [Concomitant]
     Active Substance: SPIRONOLACTONE
     Indication: ILL-DEFINED DISORDER
  29. SODIUM CHLORIDE. [Concomitant]
     Active Substance: SODIUM CHLORIDE
     Indication: ILL-DEFINED DISORDER
  30. INSULIN HUMAN NOS [Concomitant]
     Active Substance: INSULIN HUMAN
     Indication: ILL-DEFINED DISORDER

REACTIONS (1)
  - Neutropenic infection [Recovered/Resolved]

NARRATIVE: CASE EVENT DATE: 20090520
